FAERS Safety Report 10539455 (Version 2)
Quarter: 2014Q4

REPORT INFORMATION
  Report Type: Other
  Country: CA (occurrence: CA)
  Receive Date: 20141023
  Receipt Date: 20141023
  Transmission Date: 20150529
  Serious: Yes (Hospitalization, Other)
  Sender: FDA-Public Use
  Company Number: CA-GSKPPD-2014GSK028649

PATIENT
  Age: 77 Year
  Sex: Male

DRUGS (6)
  1. ENTERIC COATED ASPIRIN [Concomitant]
     Active Substance: ASPIRIN
  2. LASIX [Concomitant]
     Active Substance: FUROSEMIDE
  3. BISOPROLOL [Concomitant]
     Active Substance: BISOPROLOL
  4. AVANDIA [Suspect]
     Active Substance: ROSIGLITAZONE MALEATE
     Indication: DIABETES MELLITUS
     Dosage: AVANDIA WAS NOT LISTED AMONG THE PATIENTS DISCHARGE RECORDS.
     Route: 048
  5. RAMIPRIL. [Concomitant]
     Active Substance: RAMIPRIL
  6. NITROSPRAY [Concomitant]

REACTIONS (9)
  - Sinus tachycardia [Recovered/Resolved]
  - Heart rate irregular [Recovered/Resolved]
  - Cardiomyopathy [None]
  - Left ventricular dysfunction [Recovered/Resolved]
  - Coronary artery disease [None]
  - Atrioventricular block first degree [None]
  - Myocardial ischaemia [None]
  - Angina pectoris [Recovered/Resolved]
  - Myocardial infarction [None]

NARRATIVE: CASE EVENT DATE: 20040323
